FAERS Safety Report 19076350 (Version 2)
Quarter: 2021Q2

REPORT INFORMATION
  Report Type: Report from Study
  Country: FR (occurrence: FR)
  Receive Date: 20210331
  Receipt Date: 20210409
  Transmission Date: 20210717
  Serious: Yes (Hospitalization, Other)
  Sender: FDA-Public Use
  Company Number: FR-ROCHE-2689201

PATIENT
  Age: 82 Year
  Sex: Male

DRUGS (9)
  1. HYDROCORTISONE. [Concomitant]
     Active Substance: HYDROCORTISONE
  2. PACLITAXEL. [Suspect]
     Active Substance: PACLITAXEL
     Indication: NON-SMALL CELL LUNG CANCER
     Dosage: D1, 8, 15?ON 03/JUL/2020, 03/APR/2020 AND 19/FEB/2021 , HE RECEIVED LAST DOSE OF PACLITAXEL PRIOR TO
     Route: 042
     Dates: start: 20191227
  3. INNOVAR [Concomitant]
     Active Substance: DROPERIDOL\FENTANYL CITRATE
  4. SALBUTAMOL [Concomitant]
     Active Substance: ALBUTEROL
  5. CARBOPLATINE [Suspect]
     Active Substance: CARBOPLATIN
     Indication: NON-SMALL CELL LUNG CANCER
     Dosage: AUC 6?ON 03/JUL/2020, 19/FEB/2021 AND 20/MAR/2020, HE RECEIVED LAST DOSE OF CARBOPLATIN PRIOR TO ONS
     Route: 042
     Dates: start: 20191227
  6. BECLOMETASONE;FORMOTEROL [Concomitant]
     Active Substance: BECLOMETHASONE\FORMOTEROL
  7. THIAMAZOLE [Concomitant]
     Active Substance: METHIMAZOLE
     Dates: start: 202008
  8. ATEZOLIZUMAB. [Suspect]
     Active Substance: ATEZOLIZUMAB
     Indication: NON-SMALL CELL LUNG CANCER
     Dosage: ON 03/JUL/2020, HE RECEIVED LAST DOSE OF ATEZOLIZUMAB PRIOR TO ONSET OF SERIOUS ADVERSE EVENT.?DATE
     Route: 042
     Dates: start: 20191227
  9. LEVOTHYROX [Concomitant]
     Active Substance: LEVOTHYROXINE

REACTIONS (3)
  - Febrile neutropenia [Not Recovered/Not Resolved]
  - Adrenal insufficiency [Recovered/Resolved with Sequelae]
  - Hypothyroidism [Recovered/Resolved with Sequelae]

NARRATIVE: CASE EVENT DATE: 20200720
